FAERS Safety Report 6498777-7 (Version None)
Quarter: 2009Q4

REPORT INFORMATION
  Report Type: 
  Country: None (occurrence: None)
  Receive Date: 20091127
  Receipt Date: 20081003
  Transmission Date: 20100525
  Serious: No
  Sender: FDA-Public Use
  Company Number: 279308

PATIENT
  Age: 31 Year
  Sex: Female

DRUGS (2)
  1. NOVOLOG [Suspect]
     Indication: TYPE 1 DIABETES MELLITUS
     Dosage: , SUBCUTANEOUS
     Route: 058
     Dates: start: 20080601, end: 20080801
  2. LEXAPRO [Concomitant]

REACTIONS (2)
  - BLOOD GLUCOSE INCREASED [None]
  - STAPHYLOCOCCAL ABSCESS [None]
